FAERS Safety Report 9283954 (Version 1)
Quarter: 2013Q2

REPORT INFORMATION
  Report Type: Spontaneous
  Country: US (occurrence: US)
  Receive Date: 20130510
  Receipt Date: 20130510
  Transmission Date: 20140414
  Serious: No
  Sender: FDA-Public Use
  Company Number: US-COVIDIEN/TYCO HEALTHCARE/MALLINCKRODT-T201301489

PATIENT
  Age: 53 Year
  Sex: Female
  Weight: 90.7 kg

DRUGS (4)
  1. FENTANYL TRANSDERMAL SYSTEM [Suspect]
     Indication: BACK PAIN
     Dosage: 100 MCG/HR, Q 72 HRS
     Route: 062
  2. OXYCODONE [Suspect]
     Indication: BREAKTHROUGH PAIN
     Dosage: 30 MG, TID
     Route: 048
  3. CLONIDINE [Concomitant]
     Indication: HYPERTENSION
  4. TRAZODONE [Concomitant]
     Indication: SLEEP DISORDER

REACTIONS (1)
  - Drug screen positive [Unknown]
